FAERS Safety Report 7285394-4 (Version None)
Quarter: 2011Q1

REPORT INFORMATION
  Report Type: 
  Country: None (occurrence: None)
  Receive Date: 20110121
  Receipt Date: 20090414
  Transmission Date: 20110831
  Serious: No
  Sender: FDA-Public Use
  Company Number: AE 2009-053

PATIENT
  Age: 26 Year
  Sex: Female

DRUGS (7)
  1. KLONOPIN [Concomitant]
  2. LITHOBID [Concomitant]
  3. FAZACLO ODT [Suspect]
     Indication: BIPOLAR DISORDER
     Dosage: 250 MG QHS PO
     Route: 048
     Dates: start: 20070622, end: 20090422
  4. ATIVAN [Concomitant]
  5. PILOCARPINE [Concomitant]
  6. WELLBUTRIN [Concomitant]
  7. SEROQUEL [Concomitant]

REACTIONS (1)
  - DRY MOUTH [None]
